FAERS Safety Report 23240375 (Version 1)
Quarter: 2023Q4

REPORT INFORMATION
  Report Type: Spontaneous
  Country: US (occurrence: US)
  Receive Date: 20231129
  Receipt Date: 20231129
  Transmission Date: 20240110
  Serious: Yes (Hospitalization, Other)
  Sender: FDA-Public Use
  Company Number: US-BAXTER-2023BAX036763

PATIENT
  Age: 29 Year
  Sex: Male

DRUGS (1)
  1. IFOSFAMIDE [Suspect]
     Active Substance: IFOSFAMIDE
     Indication: Neurofibrosarcoma
     Dosage: 2500 MG/SQUARE METER, SECOND ROUND OF CHEMOTHERAPY
     Route: 042
     Dates: start: 20231114, end: 20231116

REACTIONS (1)
  - Neurotoxicity [Unknown]

NARRATIVE: CASE EVENT DATE: 20231116
